FAERS Safety Report 6487361-7 (Version None)
Quarter: 2009Q4

REPORT INFORMATION
  Report Type: 
  Country: None (occurrence: None)
  Receive Date: 20091210
  Receipt Date: 20091204
  Transmission Date: 20100525
  Serious: Yes (Other)
  Sender: FDA-Public Use
  Company Number: US-BAXTER-2009BH016611

PATIENT
  Age: 42 Year
  Sex: Male
  Weight: 68 kg

DRUGS (42)
  1. HEPARIN SODIUM INJECTION [Suspect]
     Indication: CATHETERISATION CARDIAC
     Route: 042
     Dates: start: 19990118, end: 19990118
  2. HEPARIN SODIUM INJECTION [Suspect]
     Indication: AORTIC VALVE REPLACEMENT
     Route: 042
     Dates: start: 19990118, end: 19990118
  3. HEPARIN SODIUM INJECTION [Suspect]
     Indication: CARDIAC PACEMAKER INSERTION
     Route: 042
     Dates: start: 19990118, end: 19990118
  4. HEPARIN SODIUM INJECTION [Suspect]
     Indication: LUNG OPERATION
     Route: 042
     Dates: start: 19990118, end: 19990118
  5. HEPARIN SODIUM INJECTION [Suspect]
     Route: 042
     Dates: start: 19990124, end: 19990124
  6. HEPARIN SODIUM INJECTION [Suspect]
     Route: 042
     Dates: start: 19990124, end: 19990124
  7. HEPARIN SODIUM INJECTION [Suspect]
     Route: 042
     Dates: start: 19990124, end: 19990124
  8. HEPARIN SODIUM INJECTION [Suspect]
     Route: 042
     Dates: start: 19990124, end: 19990124
  9. HEPARIN SODIUM INJECTION [Suspect]
     Route: 042
     Dates: start: 20070707, end: 20070707
  10. HEPARIN SODIUM INJECTION [Suspect]
     Route: 042
     Dates: start: 20070707, end: 20070707
  11. HEPARIN SODIUM INJECTION [Suspect]
     Route: 042
     Dates: start: 20070707, end: 20070707
  12. HEPARIN SODIUM INJECTION [Suspect]
     Route: 042
     Dates: start: 20070707, end: 20070707
  13. HEPARIN SODIUM INJECTION [Suspect]
     Route: 042
     Dates: start: 20000101, end: 20000101
  14. HEPARIN SODIUM INJECTION [Suspect]
     Route: 042
     Dates: start: 20000101, end: 20000101
  15. HEPARIN SODIUM INJECTION [Suspect]
     Route: 042
     Dates: start: 20000101, end: 20000101
  16. HEPARIN SODIUM INJECTION [Suspect]
     Route: 042
     Dates: start: 20000101, end: 20000101
  17. HEPARIN SODIUM INJECTION [Suspect]
     Route: 042
     Dates: start: 20071212, end: 20071212
  18. HEPARIN SODIUM INJECTION [Suspect]
     Route: 042
     Dates: start: 20071212, end: 20071212
  19. HEPARIN SODIUM INJECTION [Suspect]
     Route: 042
     Dates: start: 20071212, end: 20071212
  20. HEPARIN SODIUM INJECTION [Suspect]
     Route: 042
     Dates: start: 20071212, end: 20071212
  21. HEPARIN SODIUM INJECTION [Suspect]
     Route: 042
     Dates: start: 20090130, end: 20090130
  22. HEPARIN SODIUM INJECTION [Suspect]
     Route: 042
     Dates: start: 20090130, end: 20090130
  23. HEPARIN SODIUM INJECTION [Suspect]
     Route: 042
     Dates: start: 20090130, end: 20090130
  24. HEPARIN SODIUM INJECTION [Suspect]
     Route: 042
     Dates: start: 20090130, end: 20090130
  25. HEPARIN SODIUM INJECTION [Suspect]
     Route: 042
     Dates: start: 20090131, end: 20090131
  26. HEPARIN SODIUM INJECTION [Suspect]
     Route: 042
     Dates: start: 20090131, end: 20090131
  27. HEPARIN SODIUM INJECTION [Suspect]
     Route: 042
     Dates: start: 20090131, end: 20090131
  28. HEPARIN SODIUM INJECTION [Suspect]
     Route: 042
     Dates: start: 20090131, end: 20090131
  29. ASPIRIN [Concomitant]
     Indication: DRUG USE FOR UNKNOWN INDICATION
     Route: 065
  30. CARDIZEM [Concomitant]
     Indication: DRUG USE FOR UNKNOWN INDICATION
     Route: 065
  31. TOPROL-XL [Concomitant]
     Indication: DRUG USE FOR UNKNOWN INDICATION
     Route: 065
  32. BETAPACE [Concomitant]
     Indication: DRUG USE FOR UNKNOWN INDICATION
     Route: 065
  33. WARFARIN SODIUM [Concomitant]
     Indication: DRUG USE FOR UNKNOWN INDICATION
     Route: 065
  34. WARFARIN SODIUM [Concomitant]
     Route: 065
  35. LASIX [Concomitant]
     Indication: DRUG USE FOR UNKNOWN INDICATION
     Route: 065
  36. LIPITOR [Concomitant]
     Indication: DRUG USE FOR UNKNOWN INDICATION
     Route: 065
  37. KAY CIEL DURA-TABS [Concomitant]
     Indication: DRUG USE FOR UNKNOWN INDICATION
     Route: 065
  38. SOTALOL HCL [Concomitant]
     Indication: DRUG USE FOR UNKNOWN INDICATION
     Route: 065
  39. MAGNESIUM [Concomitant]
     Indication: DRUG USE FOR UNKNOWN INDICATION
     Route: 065
  40. COZAAR [Concomitant]
     Indication: DRUG USE FOR UNKNOWN INDICATION
     Route: 065
  41. POTASSIUM [Concomitant]
     Indication: DRUG USE FOR UNKNOWN INDICATION
     Route: 065
  42. NATRECOR [Concomitant]
     Indication: DRUG USE FOR UNKNOWN INDICATION
     Route: 065

REACTIONS (15)
  - ATRIAL FIBRILLATION [None]
  - BILIARY TRACT DISORDER [None]
  - BLOOD PRESSURE FLUCTUATION [None]
  - CARDIAC FAILURE CONGESTIVE [None]
  - DYSPNOEA [None]
  - GALLBLADDER DISORDER [None]
  - HYPERCHOLESTEROLAEMIA [None]
  - HYPERSENSITIVITY [None]
  - HYPOAESTHESIA [None]
  - OEDEMA MOUTH [None]
  - PARAESTHESIA [None]
  - PHARYNGEAL OEDEMA [None]
  - PLEURAL EFFUSION [None]
  - PNEUMONIA [None]
  - RESPIRATORY FAILURE [None]
